FAERS Safety Report 6882622-1 (Version None)
Quarter: 2010Q3

REPORT INFORMATION
  Report Type: 
  Country: None (occurrence: None)
  Receive Date: 20100729
  Receipt Date: 20100723
  Transmission Date: 20110219
  Serious: Yes (Hospitalization)
  Sender: FDA-Public Use
  Company Number: AT-ROCHE-713381

PATIENT
  Sex: Male
  Weight: 99 kg

DRUGS (4)
  1. PEGINTERFERON ALFA-2A [Suspect]
     Dosage: FORM: PRE-FILLED SYRINGE.LAST DOSE PRIOR TO SAE:25 JUN 10
     Route: 058
     Dates: start: 20100611, end: 20100702
  2. PEGINTERFERON ALFA-2A [Suspect]
     Route: 058
     Dates: start: 20100706
  3. RIBAVIRIN [Suspect]
     Dosage: LAST DOSE PRIOR TO SAE:02 JULY 2010
     Route: 048
     Dates: start: 20100611, end: 20100702
  4. RIBAVIRIN [Suspect]
     Route: 048
     Dates: start: 20100706

REACTIONS (1)
  - JAUNDICE CHOLESTATIC [None]
